FAERS Safety Report 7668500-9 (Version None)
Quarter: 2011Q3

REPORT INFORMATION
  Report Type: 
  Country: None (occurrence: None)
  Receive Date: 20110808
  Receipt Date: 20110729
  Transmission Date: 20111222
  Serious: Yes (Death)
  Sender: FDA-Public Use
  Company Number: CN-NAPPMUNDI-MAG-2011-0001581

PATIENT
  Sex: Female

DRUGS (1)
  1. MORPHINE SULFATE [Suspect]
     Indication: PAIN
     Dosage: 10 MG, Q4H
     Route: 048
     Dates: start: 20110727, end: 20110728

REACTIONS (2)
  - RESPIRATORY FAILURE [None]
  - CIRCULATORY COLLAPSE [None]
